FAERS Safety Report 11061422 (Version 1)
Quarter: 2015Q2

REPORT INFORMATION
  Report Type: Spontaneous
  Country: US (occurrence: None)
  Receive Date: 20150423
  Receipt Date: 20150423
  Transmission Date: 20150821
  Serious: No
  Sender: FDA-Public Use
  Company Number: None

PATIENT
  Age: 69 Year
  Sex: Female
  Weight: 74.84 kg

DRUGS (5)
  1. ICY HOT [Suspect]
     Active Substance: MENTHOL\METHYL SALICYLATE
     Indication: MYALGIA
     Dates: start: 20150420
  2. LINSINOPRIL [Concomitant]
  3. MAGNESIUM [Concomitant]
     Active Substance: MAGNESIUM
  4. ATORVASTATIN CALCIUM. [Concomitant]
     Active Substance: ATORVASTATIN CALCIUM
  5. CITRACAL [Concomitant]
     Active Substance: CALCIUM CITRATE

REACTIONS (4)
  - Application site erythema [None]
  - Application site vesicles [None]
  - Application site burn [None]
  - Application site pain [None]

NARRATIVE: CASE EVENT DATE: 20150421
